FAERS Safety Report 16752876 (Version 4)
Quarter: 2021Q2

REPORT INFORMATION
  Report Type: Other
  Country: CA (occurrence: CA)
  Receive Date: 20190829
  Receipt Date: 20210520
  Transmission Date: 20210716
  Serious: Yes (Other)
  Sender: FDA-Public Use
  Company Number: CA-ROCHE-2392609

PATIENT
  Sex: Female

DRUGS (11)
  1. ATARAX [Concomitant]
     Active Substance: HYDROXYZINE HYDROCHLORIDE
     Indication: PRODUCT USED FOR UNKNOWN INDICATION
     Dosage: 1 DF, QD
     Route: 048
     Dates: start: 20190530
  2. XOLAIR [Suspect]
     Active Substance: OMALIZUMAB
     Route: 065
     Dates: start: 20210510
  3. MONTELUKAST [Concomitant]
     Active Substance: MONTELUKAST SODIUM
     Indication: PRODUCT USED FOR UNKNOWN INDICATION
     Dosage: 1 DF, QD
     Route: 048
     Dates: start: 20190508
  4. VENLAFAXINE [Concomitant]
     Active Substance: VENLAFAXINE HYDROCHLORIDE
     Indication: PRODUCT USED FOR UNKNOWN INDICATION
     Dosage: 1 DF, QD
     Route: 048
     Dates: start: 201905
  5. XOLAIR [Suspect]
     Active Substance: OMALIZUMAB
     Route: 065
  6. ZANTAC [Concomitant]
     Active Substance: RANITIDINE HYDROCHLORIDE
     Indication: PRODUCT USED FOR UNKNOWN INDICATION
     Dosage: 1 DF, QD
     Route: 048
     Dates: start: 201901
  7. XOLAIR [Suspect]
     Active Substance: OMALIZUMAB
     Route: 058
     Dates: start: 20190724
  8. BILASTINE [Concomitant]
     Active Substance: BILASTINE
     Indication: PRODUCT USED FOR UNKNOWN INDICATION
     Dosage: 4 DF, QD
     Route: 048
     Dates: start: 201901
  9. PREDNISONE. [Concomitant]
     Active Substance: PREDNISONE
  10. XOLAIR [Suspect]
     Active Substance: OMALIZUMAB
     Indication: CHRONIC SPONTANEOUS URTICARIA
     Route: 058
     Dates: start: 20190612
  11. BISOPROLOL [Concomitant]
     Active Substance: BISOPROLOL

REACTIONS (18)
  - Dizziness [Unknown]
  - Skin injury [Not Recovered/Not Resolved]
  - Middle insomnia [Unknown]
  - Alopecia [Unknown]
  - Urticaria [Not Recovered/Not Resolved]
  - Autoimmune disorder [Unknown]
  - Impaired healing [Unknown]
  - Pruritus [Not Recovered/Not Resolved]
  - Nausea [Unknown]
  - Inflammation [Not Recovered/Not Resolved]
  - Bowel movement irregularity [Unknown]
  - Pigmentation disorder [Not Recovered/Not Resolved]
  - Head discomfort [Unknown]
  - Fatigue [Unknown]
  - Feeling abnormal [Unknown]
  - Headache [Not Recovered/Not Resolved]
  - Abdominal pain upper [Unknown]
  - Weight increased [Unknown]
